FAERS Safety Report 4933944-2 (Version None)
Quarter: 2006Q1

REPORT INFORMATION
  Report Type: 
  Country: None (occurrence: None)
  Receive Date: 20060303
  Receipt Date: 20060223
  Transmission Date: 20060701
  Serious: Yes (Disabling, Other)
  Sender: FDA-Public Use
  Company Number: GXKR2006CH01176

PATIENT
  Age: 55 Year
  Sex: Female
  Weight: 77 kg

DRUGS (2)
  1. DICLOFENAC (NGX) (DICLOFENAC) [Suspect]
     Indication: JOINT INJURY
     Dosage: 75 MG, BID, ORAL; SEE IMAGE
     Route: 048
     Dates: start: 20050701, end: 20050707
  2. DICLOFENAC (NGX) (DICLOFENAC) [Suspect]
     Indication: JOINT INJURY
     Dosage: 75 MG, BID, ORAL; SEE IMAGE
     Route: 048
     Dates: start: 20051205, end: 20051212

REACTIONS (2)
  - MICTURITION URGENCY [None]
  - URINARY INCONTINENCE [None]
